FAERS Safety Report 18820378 (Version 5)
Quarter: 2021Q4

REPORT INFORMATION
  Report Type: Report from Study
  Country: US (occurrence: US)
  Receive Date: 20210202
  Receipt Date: 20211223
  Transmission Date: 20220304
  Serious: No
  Sender: FDA-Public Use
  Company Number: NVSC2021US019833

PATIENT
  Sex: Male

DRUGS (2)
  1. GILENYA [Suspect]
     Active Substance: FINGOLIMOD HYDROCHLORIDE
     Indication: Multiple sclerosis
     Dosage: 0.5 MG, QD
     Route: 048
  2. GILENYA [Suspect]
     Active Substance: FINGOLIMOD HYDROCHLORIDE
     Dosage: 0.5 MG, QD
     Route: 048

REACTIONS (3)
  - Pigmentation disorder [Unknown]
  - Erythema [Unknown]
  - Somnolence [Unknown]
